FAERS Safety Report 25709303 (Version 1)
Quarter: 2025Q3

REPORT INFORMATION
  Report Type: Report from Study
  Country: US (occurrence: US)
  Receive Date: 20250821
  Receipt Date: 20250821
  Transmission Date: 20251021
  Serious: Yes (Hospitalization)
  Sender: GILEAD
  Company Number: US-GILEAD-2025-0725053

PATIENT
  Sex: Female

DRUGS (1)
  1. AZTREONAM LYSINE [Suspect]
     Active Substance: AZTREONAM LYSINE
     Indication: Cystic fibrosis
     Dosage: 75 MG, TID (INHALE INTO THE LUNGS VIA ALTERA NEBULIZER THREE TIMES DAILY 28 DAYS ON AND 28 DAYS OFF)
     Route: 055

REACTIONS (1)
  - Condition aggravated [Not Recovered/Not Resolved]
